FAERS Safety Report 14686109 (Version 2)
Quarter: 2018Q4

REPORT INFORMATION
  Report Type: Report from Study
  Country: DE (occurrence: DE)
  Receive Date: 20180327
  Receipt Date: 20181210
  Transmission Date: 20190204
  Serious: Yes (Hospitalization, Other)
  Sender: FDA-Public Use
  Company Number: DE-PFIZER INC-2018123277

PATIENT
  Age: 49 Year
  Sex: Female

DRUGS (16)
  1. METHOTREXATE SODIUM. [Suspect]
     Active Substance: METHOTREXATE SODIUM
     Dosage: 5 MG, WEEKLY
     Route: 065
     Dates: start: 20130830
  2. PROTEIN [Concomitant]
     Active Substance: PROTEIN
     Dosage: UNK
     Route: 065
  3. PLASMA PROTEIN FRACTION (HUMAN) [Concomitant]
     Active Substance: PLASMA PROTEIN FRACTION (HUMAN)
  4. FOLIC ACID. [Concomitant]
     Active Substance: FOLIC ACID
  5. ABATACEPT [Suspect]
     Active Substance: ABATACEPT
     Indication: RHEUMATOID ARTHRITIS
     Dosage: 125 MG, QWK
     Route: 058
  6. I RON [Concomitant]
     Active Substance: FERROUS FUMARATE
     Dosage: UNK
     Route: 065
  7. RAMIPRIL. [Concomitant]
     Active Substance: RAMIPRIL
     Dosage: UNK
     Route: 065
  8. DECORTIN [Concomitant]
     Active Substance: PREDNISONE
     Dosage: UNK
     Route: 065
  9. TRAMADOL. [Concomitant]
     Active Substance: TRAMADOL
  10. METHOTREXATE SODIUM. [Suspect]
     Active Substance: METHOTREXATE SODIUM
     Dosage: 5 MG, WEEKLY
     Route: 065
     Dates: start: 20130731
  11. NO SUBJECT DRUG [Suspect]
     Active Substance: UNSPECIFIED INGREDIENT
     Dosage: NO DOSE GIVEN
  12. OXYCODONE [Concomitant]
     Active Substance: OXYCODONE
     Dosage: UNK
     Route: 065
  13. DICLOFENAC [Concomitant]
     Active Substance: DICLOFENAC
  14. METHOTREXATE SODIUM. [Suspect]
     Active Substance: METHOTREXATE SODIUM
     Dosage: 5 MG, WEEKLY
     Route: 065
     Dates: start: 20120117, end: 20130117
  15. METHOTREXATE SODIUM. [Suspect]
     Active Substance: METHOTREXATE SODIUM
     Dosage: 5 MG, WEEKLY
     Route: 065
     Dates: start: 201007, end: 201010
  16. FERROUS GLUCONATE [Concomitant]
     Active Substance: FERROUS GLUCONATE
     Dosage: UNK
     Route: 065

REACTIONS (6)
  - Medical device site joint infection [Not Recovered/Not Resolved]
  - Off label use [Unknown]
  - Arthritis infective [Not Recovered/Not Resolved]
  - Arthropathy [Recovered/Resolved]
  - Post procedural infection [Recovered/Resolved]
  - Rash [Not Recovered/Not Resolved]

NARRATIVE: CASE EVENT DATE: 20131023
